FAERS Safety Report 4651485-7 (Version None)
Quarter: 2005Q2

REPORT INFORMATION
  Report Type: 
  Country: None (occurrence: None)
  Receive Date: 20050404
  Receipt Date: 20050110
  Transmission Date: 20051028
  Serious: No
  Sender: FDA-Public Use
  Company Number: US_0501110306

PATIENT
  Age: 54 Year
  Sex: Male

DRUGS (3)
  1. CYMBALTA [Suspect]
     Dosage: 30 MG
     Dates: start: 20050106
  2. OXYCODONE HCL [Concomitant]
  3. TOPIRAMATE [Concomitant]

REACTIONS (1)
  - FALL [None]
